FAERS Safety Report 9726935 (Version 6)
Quarter: 2021Q2

REPORT INFORMATION
  Report Type: Spontaneous
  Country: JP (occurrence: JP)
  Receive Date: 20131203
  Receipt Date: 20210604
  Transmission Date: 20210717
  Serious: Yes (Hospitalization, Other)
  Sender: FDA-Public Use
  Company Number: JP-B.I. PHARMACEUTICALS,INC./RIDGEFIELD-2013-BI-39701GD

PATIENT
  Age: 83 Year
  Sex: Female

DRUGS (3)
  1. LANSOPRAZOLE. [Concomitant]
     Active Substance: LANSOPRAZOLE
     Indication: GASTROOESOPHAGEAL REFLUX DISEASE
     Route: 065
     Dates: start: 201302
  2. MOBIC [Suspect]
     Active Substance: MELOXICAM
     Indication: OSTEOPOROSIS
     Route: 065
     Dates: start: 201302, end: 201303
  3. MOBIC [Suspect]
     Active Substance: MELOXICAM
     Indication: ARTHRALGIA

REACTIONS (13)
  - Melaena [Recovered/Resolved]
  - Leukocytosis [Unknown]
  - Product use in unapproved indication [Recovered/Resolved]
  - Bacterial translocation [Recovered/Resolved]
  - Enterocolitis [Unknown]
  - Shock haemorrhagic [Unknown]
  - Small intestinal stenosis [Unknown]
  - Large intestinal ulcer [Recovered/Resolved]
  - Gastrointestinal erosion [Unknown]
  - Abdominal pain [Unknown]
  - Diarrhoea [Recovered/Resolved]
  - Pyrexia [Unknown]
  - Diaphragmatic hernia [Unknown]

NARRATIVE: CASE EVENT DATE: 201303
